FAERS Safety Report 14786821 (Version 1)
Quarter: 2018Q2

REPORT INFORMATION
  Report Type: Spontaneous
  Country: FR (occurrence: FR)
  Receive Date: 20180420
  Receipt Date: 20180420
  Transmission Date: 20180711
  Serious: Yes (Hospitalization)
  Sender: FDA-Public Use
  Company Number: FR-TEVA-2018-FR-883816

PATIENT
  Age: 71 Year
  Sex: Female
  Weight: 85 kg

DRUGS (11)
  1. AMOXICILLIN. [Suspect]
     Active Substance: AMOXICILLIN
     Indication: BRONCHITIS
     Dosage: 2 GRAM DAILY;
     Route: 048
  2. KARDEGIC [Interacting]
     Active Substance: ASPIRIN DL-LYSINE
     Indication: CARDIOVASCULAR EVENT PROPHYLAXIS
     Dosage: 1 DOSAGE FORMS DAILY;
     Route: 048
  3. METFORMINE [Concomitant]
     Active Substance: METFORMIN HYDROCHLORIDE
     Dosage: 1700 MILLIGRAM DAILY;
     Route: 048
  4. REPAGLINIDE. [Concomitant]
     Active Substance: REPAGLINIDE
     Dosage: 12 MILLIGRAM DAILY;
     Route: 048
  5. BISOPROLOL (FUMARATE ACIDE DE) [Concomitant]
     Active Substance: BISOPROLOL FUMARATE
     Dosage: 5 MILLIGRAM DAILY;
     Route: 048
  6. PREVISCAN 20 MG, COMPRIM? S?CABLE [Interacting]
     Active Substance: FLUINDIONE
     Indication: ATRIAL FIBRILLATION
     Dosage: 10 MILLIGRAM DAILY;
     Route: 048
  7. SITAGLIPTINE [Concomitant]
     Active Substance: SITAGLIPTIN
     Dosage: 100 MILLIGRAM DAILY;
     Route: 048
  8. CANDESARTAN CILEXETIL. [Concomitant]
     Active Substance: CANDESARTAN CILEXETIL
     Dosage: 4 MILLIGRAM DAILY;
     Route: 048
  9. FUROSEMIDE. [Concomitant]
     Active Substance: FUROSEMIDE
     Dosage: 60 MILLIGRAM DAILY;
     Route: 048
  10. SIMVASTATINE [Concomitant]
     Active Substance: SIMVASTATIN
     Dosage: 40 MILLIGRAM DAILY;
     Route: 048
  11. LERCAN 10 MG, COMPRIM? PELLICUL? S?CABLE [Concomitant]
     Active Substance: LERCANIDIPINE HYDROCHLORIDE
     Dosage: 1 DOSAGE FORMS DAILY;
     Route: 048

REACTIONS (4)
  - International normalised ratio increased [Recovered/Resolved]
  - Hypovolaemic shock [Recovered/Resolved]
  - Drug interaction [Recovered/Resolved]
  - Melaena [Recovered/Resolved]
